FAERS Safety Report 7691334-6 (Version None)
Quarter: 2011Q3

REPORT INFORMATION
  Report Type: 
  Country: None (occurrence: None)
  Receive Date: 20110818
  Receipt Date: 20110805
  Transmission Date: 20111222
  Serious: Yes (Hospitalization)
  Sender: FDA-Public Use
  Company Number: PHHY2011US64300

PATIENT
  Sex: Female
  Weight: 81.6 kg

DRUGS (1)
  1. EXJADE [Suspect]
     Indication: IRON OVERLOAD
     Dosage: 1500 MG, QD
     Route: 048
     Dates: start: 20110511

REACTIONS (5)
  - MUSCLE SPASMS [None]
  - CEREBROVASCULAR ACCIDENT [None]
  - FLATULENCE [None]
  - ABDOMINAL PAIN [None]
  - ABDOMINAL DISTENSION [None]
